FAERS Safety Report 4785981-9 (Version None)
Quarter: 2005Q3

REPORT INFORMATION
  Report Type: 
  Country: None (occurrence: None)
  Receive Date: 20050930
  Receipt Date: 20050930
  Transmission Date: 20060218
  Serious: Yes (Congenital Anomaly)
  Sender: FDA-Public Use
  Company Number: None

PATIENT
  Age: 28 Year
  Sex: Male
  Weight: 74.8435 kg

DRUGS (1)
  1. CORGARD [Suspect]
     Indication: HYPERTENSION
     Dosage: 80MG 2 TIMES PER DAY PO
     Route: 048
     Dates: start: 19890201, end: 20000930

REACTIONS (2)
  - DRUG EXPOSURE DURING PREGNANCY [None]
  - SPINAL MUSCULAR ATROPHY [None]
